FAERS Safety Report 16343058 (Version 1)
Quarter: 2019Q3

REPORT INFORMATION
  Report Type: Spontaneous
  Country: US (occurrence: US)
  Receive Date: 20190521
  Receipt Date: 20190521
  Transmission Date: 20191004
  Serious: Yes (Other)
  Sender: FDA-Public Use
  Company Number: None

PATIENT
  Age: 65 Year
  Sex: Male
  Weight: 79.2 kg

DRUGS (10)
  1. VENLAFAXINE [Concomitant]
     Active Substance: VENLAFAXINE HYDROCHLORIDE
  2. LAMOTRIGINE. [Concomitant]
     Active Substance: LAMOTRIGINE
  3. LIPITOR [Concomitant]
     Active Substance: ATORVASTATIN CALCIUM
  4. VALSARTAN. [Concomitant]
     Active Substance: VALSARTAN
  5. TRINTELLIX [Concomitant]
     Active Substance: VORTIOXETINE HYDROBROMIDE
  6. CLONAZEPAM. [Concomitant]
     Active Substance: CLONAZEPAM
  7. FLUOXETINE [Concomitant]
     Active Substance: FLUOXETINE HYDROCHLORIDE
  8. OMEPRAZOLE. [Concomitant]
     Active Substance: OMEPRAZOLE
  9. SEROQUEL [Concomitant]
     Active Substance: QUETIAPINE FUMARATE
  10. VENLAFAXINE XR [Suspect]
     Active Substance: VENLAFAXINE HYDROCHLORIDE
     Indication: DEPRESSION
     Dosage: ?          QUANTITY:1 CAPSULE(S);?
     Route: 048
     Dates: start: 20040101

REACTIONS (1)
  - Drug withdrawal syndrome [None]

NARRATIVE: CASE EVENT DATE: 20190504
